FAERS Safety Report 9836998 (Version 3)
Quarter: 2014Q1

REPORT INFORMATION
  Report Type: Spontaneous
  Country: US (occurrence: US)
  Receive Date: 20140123
  Receipt Date: 20140311
  Transmission Date: 20141002
  Serious: No
  Sender: FDA-Public Use
  Company Number: US-PFIZER INC-2014017241

PATIENT
  Age: 62 Year
  Sex: Male
  Weight: 68.03 kg

DRUGS (6)
  1. VIAGRA [Suspect]
     Indication: ERECTILE DYSFUNCTION
     Dosage: 50 MG, AS NEEDED
     Dates: start: 2009
  2. VIAGRA [Suspect]
     Dosage: UNK
  3. AZULFIDINE [Concomitant]
     Indication: COLITIS ULCERATIVE
     Dosage: 500 MG, 3X/DAY (TWO TABLETS OF 250MG)
  4. LYRICA [Concomitant]
     Indication: NERVE INJURY
     Dosage: 75 MG, 2X/DAY
     Route: 048
  5. TRAMADOL HYDROCHLORIDE [Concomitant]
     Indication: NERVE INJURY
     Dosage: 50 MG, 3X/DAY
  6. SULFASALAZINE [Concomitant]
     Dosage: 500 MG, UNK

REACTIONS (3)
  - Flushing [Unknown]
  - Product quality issue [Unknown]
  - Drug ineffective [Unknown]
